FAERS Safety Report 6425987-7 (Version None)
Quarter: 2009Q4

REPORT INFORMATION
  Report Type: 
  Country: None (occurrence: None)
  Receive Date: 20091103
  Receipt Date: 20091103
  Transmission Date: 20100525
  Serious: No
  Sender: FDA-Public Use
  Company Number: None

PATIENT
  Age: 85 Year
  Sex: Male

DRUGS (1)
  1. ENOXAPARIN SODIUM [Suspect]
     Dosage: SQ
     Route: 058
     Dates: start: 20080313, end: 20080316

REACTIONS (2)
  - HAEMORRHAGE [None]
  - INJECTION SITE HAEMORRHAGE [None]
